FAERS Safety Report 7651080-1 (Version None)
Quarter: 2011Q3

REPORT INFORMATION
  Report Type: 
  Country: None (occurrence: None)
  Receive Date: 20110802
  Receipt Date: 20110628
  Transmission Date: 20111222
  Serious: No
  Sender: FDA-Public Use
  Company Number: PHHY2011US12132

PATIENT
  Sex: Male
  Weight: 117.91 kg

DRUGS (7)
  1. GLEEVEC [Suspect]
     Indication: CHRONIC MYELOID LEUKAEMIA
     Dosage: 400 MG, DAILY
     Route: 048
     Dates: start: 20090901, end: 20101101
  2. CARAFATE [Concomitant]
     Indication: GASTRITIS
     Dosage: UNK
     Route: 048
     Dates: start: 20090401, end: 20100501
  3. LANSOPRAZOLE [Concomitant]
     Indication: GASTRITIS
     Route: 048
  4. ALLOPURINOL [Concomitant]
     Indication: CHRONIC MYELOID LEUKAEMIA
     Dosage: 300 MG, DAILY
     Route: 048
     Dates: start: 20090101, end: 20100501
  5. PHENERGAN [Concomitant]
     Indication: NAUSEA
     Dosage: 25 MG, UKN
     Route: 048
     Dates: start: 20090101, end: 20110501
  6. TASIGNA [Suspect]
     Indication: CHRONIC MYELOID LEUKAEMIA
     Dosage: 300 MG, BID
     Route: 048
     Dates: start: 20101221
  7. SPRYCEL [Concomitant]
     Indication: CHRONIC MYELOID LEUKAEMIA
     Dosage: 100 MG, DAILY
     Route: 048
     Dates: start: 20090101, end: 20090601

REACTIONS (6)
  - PRURITUS [None]
  - GASTRITIS [None]
  - FATIGUE [None]
  - ABDOMINAL DISCOMFORT [None]
  - SOMNOLENCE [None]
  - MALAISE [None]
